FAERS Safety Report 9302692 (Version 1)
Quarter: 2013Q2

REPORT INFORMATION
  Report Type: Spontaneous
  Country: ES (occurrence: ES)
  Receive Date: 20130522
  Receipt Date: 20130522
  Transmission Date: 20140414
  Serious: Yes (Hospitalization)
  Sender: FDA-Public Use
  Company Number: PHHY2013ES048424

PATIENT
  Age: 53 Year
  Sex: Female

DRUGS (6)
  1. VALSARTAN [Suspect]
     Indication: HYPERTENSION
     Dosage: 80 MG, UNK
     Route: 048
     Dates: start: 200908, end: 20100729
  2. ENALAPRIL [Interacting]
     Indication: HYPERTENSION
     Dosage: UNK UKN, UNK
     Route: 048
     Dates: start: 200908, end: 20100729
  3. ADVAGRAF [Interacting]
     Indication: RENAL TRANSPLANT
     Dosage: 0.5 MG, UNK
     Route: 048
     Dates: start: 201001, end: 20100729
  4. WARFARIN [Concomitant]
     Dosage: UNK UKN, UNK
     Dates: start: 20081006
  5. MYCOPHENOLATE MOFETIL [Concomitant]
     Dosage: UNK UKN, UNK
     Dates: start: 20071201
  6. NORVAS [Concomitant]
     Dosage: 5 MG
     Dates: start: 200908, end: 20100729

REACTIONS (3)
  - Drug interaction [Recovering/Resolving]
  - Renal failure acute [Recovering/Resolving]
  - Hyperkalaemia [Recovered/Resolved]
